FAERS Safety Report 24750048 (Version 4)
Quarter: 2025Q3

REPORT INFORMATION
  Report Type: Spontaneous
  Country: US (occurrence: US)
  Receive Date: 20241218
  Receipt Date: 20250916
  Transmission Date: 20251021
  Serious: Yes (Other)
  Sender: SANOFI AVENTIS
  Company Number: US-SA-2024SA370079

PATIENT
  Age: 62 Year
  Sex: Male

DRUGS (3)
  1. DUPIXENT [Suspect]
     Active Substance: DUPILUMAB
     Indication: Eosinophilic oesophagitis
     Dosage: 300 MG, QW
     Route: 058
     Dates: start: 20230920
  2. OMEPRAZOLE [Suspect]
     Active Substance: OMEPRAZOLE
     Dosage: 40 MG, QD
     Dates: end: 2024
  3. PEPCID AC [Concomitant]
     Active Substance: FAMOTIDINE
     Indication: Dyspepsia
     Dosage: 20 MG, BID

REACTIONS (6)
  - Neuropathy peripheral [Unknown]
  - Intervertebral disc compression [Unknown]
  - Spinal stenosis [Unknown]
  - Spinal disorder [Not Recovered/Not Resolved]
  - Dysphagia [Recovered/Resolved]
  - Arthritis [Recovering/Resolving]

NARRATIVE: CASE EVENT DATE: 20230101
